FAERS Safety Report 8966401 (Version 1)
Quarter: 2012Q4

REPORT INFORMATION
  Report Type: 
  Country: MX (occurrence: MX)
  Receive Date: 20121216
  Receipt Date: 20121216
  Transmission Date: 20130627
  Serious: Yes (Other)
  Sender: FDA-Public Use
  Company Number: MX-BRISTOL-MYERS SQUIBB COMPANY-17189176

PATIENT
  Age: 61 Year
  Sex: Male
  Weight: 73 kg

DRUGS (7)
  1. COAPROVEL TABS 150MG/12.5MG [Suspect]
     Indication: HYPERTENSION
     Dosage: 1df:1 tab
     Route: 048
     Dates: start: 2010
  2. APROVEL TABS 150 MG [Suspect]
     Indication: HYPERTENSION
     Dosage: 1df:1/2 tab
     Route: 048
     Dates: start: 2010
  3. TENORMIN [Concomitant]
     Indication: HYPERTENSION
     Dosage: Tab
     Route: 048
     Dates: start: 2010
  4. RASILEZ [Concomitant]
     Indication: HYPERTENSION
     Dosage: Tab
     Route: 048
     Dates: start: 2010
  5. LIPITOR [Concomitant]
     Indication: HYPERCHOLESTEROLAEMIA
     Route: 048
     Dates: start: 2010, end: 201112
  6. CRESTOR [Concomitant]
     Indication: HYPERCHOLESTEROLAEMIA
     Dosage: Tab
     Route: 048
     Dates: start: 201112
  7. CILOSTAZOL [Concomitant]
     Dosage: Tab
     Route: 048
     Dates: start: 201112

REACTIONS (2)
  - Peripheral artery aneurysm [Unknown]
  - Medication error [Unknown]
